FAERS Safety Report 18296770 (Version 2)
Quarter: 2020Q3

REPORT INFORMATION
  Report Type: Report from Study
  Country: GB (occurrence: GB)
  Receive Date: 20200922
  Receipt Date: 20200928
  Transmission Date: 20201103
  Serious: Yes (Other)
  Sender: FDA-Public Use
  Company Number: GB-SAMSUNG BIOEPIS-SB-2020-29286

PATIENT
  Age: 34 Year
  Sex: Male

DRUGS (1)
  1. IMRALDI [Suspect]
     Active Substance: ADALIMUMAB
     Indication: SPONDYLOARTHROPATHY
     Route: 058
     Dates: start: 20200902

REACTIONS (5)
  - Product use in unapproved indication [Unknown]
  - COVID-19 [Unknown]
  - Back pain [Unknown]
  - Asthma [Unknown]
  - Spondylitis [Unknown]
